FAERS Safety Report 6981867-X (Version None)
Quarter: 2010Q3

REPORT INFORMATION
  Report Type: 
  Country: None (occurrence: None)
  Receive Date: 20100909
  Receipt Date: 20100825
  Transmission Date: 20110219
  Serious: Yes (Hospitalization)
  Sender: FDA-Public Use
  Company Number: AUR-APL-2010-01832

PATIENT
  Age: 79 Year
  Sex: Male

DRUGS (15)
  1. METFORMIN HCL [Suspect]
     Indication: DIABETES MELLITUS
     Dosage: 500 MG, TID, ORAL
     Route: 048
  2. ATORVASTATIN CALCIUM [Suspect]
     Indication: HYPERCHOLESTEROLAEMIA
     Dosage: 20MG, DAILY, ORAL
     Route: 048
     Dates: end: 20100712
  3. BENDROFLUMETHIAZIDE [Suspect]
     Indication: POLYURIA
     Dosage: 2.5MG, DAILY, ORAL
     Route: 048
  4. FUROSEMIDE [Suspect]
     Indication: FLUID OVERLOAD
     Dosage: 40MG, DAILY, ORAL
     Route: 048
  5. OXYCONTIN [Suspect]
     Indication: PHANTOM PAIN
     Dosage: 40MG, BID, ORAL
     Route: 048
  6. OXYCODONE HCL [Suspect]
     Indication: BREAKTHROUGH PAIN
     Dosage: 10MG, QID, ORAL
     Route: 048
     Dates: end: 20100712
  7. RAMIPRIL [Suspect]
     Indication: LEFT VENTRICULAR FAILURE
     Dosage: 7.5 MG, DAILY, ORAL
     Route: 048
     Dates: end: 20100712
  8. ASPIRIN [Concomitant]
  9. DOXYCYCLINE [Concomitant]
  10. BENDROFLUMETHIAZIDE [Concomitant]
  11. FUROSEMIDE [Concomitant]
  12. METFORMIN [Concomitant]
  13. ACETAMINOPHEN [Concomitant]
  14. PREGABALIN [Concomitant]
  15. RAMIPRIL [Concomitant]

REACTIONS (6)
  - CONFUSIONAL STATE [None]
  - MIOSIS [None]
  - RENAL IMPAIRMENT [None]
  - SEPSIS [None]
  - SOMNOLENCE [None]
  - WOUND [None]
